FAERS Safety Report 17215806 (Version 1)
Quarter: 2019Q4

REPORT INFORMATION
  Report Type: Report from Study
  Country: IT (occurrence: IT)
  Receive Date: 20191230
  Receipt Date: 20191230
  Transmission Date: 20200122
  Serious: Yes (Other)
  Sender: FDA-Public Use
  Company Number: IT-INCYTE CORPORATION-2018IN011039

PATIENT

DRUGS (5)
  1. FLUXUM [Concomitant]
     Active Substance: PARNAPARIN SODIUM
     Indication: THROMBOSIS PROPHYLAXIS
     Dosage: 0.3 OT, UNK
     Route: 065
     Dates: start: 20180804, end: 20180819
  2. ACETYLSALICYLIC ACID [Concomitant]
     Active Substance: ASPIRIN
     Indication: PROPHYLAXIS
     Dosage: 100 OT, UNK
     Route: 065
     Dates: start: 20161221
  3. HIDROXYUREA [Concomitant]
     Indication: POLYCYTHAEMIA VERA
     Dosage: 500 OT
     Route: 065
     Dates: start: 20161221, end: 20170507
  4. AUGMENTIN [Concomitant]
     Active Substance: AMOXICILLIN\CLAVULANATE POTASSIUM
     Indication: ANTIBIOTIC PROPHYLAXIS
     Dosage: UNK
     Route: 065
     Dates: start: 20180802, end: 20180808
  5. JAKAVI [Suspect]
     Active Substance: RUXOLITINIB
     Indication: POLYCYTHAEMIA VERA
     Dosage: 20 OT, UNK
     Route: 048
     Dates: start: 20180628

REACTIONS (9)
  - Anaemia [Not Recovered/Not Resolved]
  - Road traffic accident [Recovered/Resolved]
  - Injury [Not Recovered/Not Resolved]
  - Limb injury [Recovered/Resolved]
  - Ophthalmic herpes zoster [Recovered/Resolved]
  - Head injury [Recovered/Resolved]
  - Radius fracture [Recovered/Resolved]
  - Wound [Recovered/Resolved]
  - Haematoma [Recovered/Resolved]

NARRATIVE: CASE EVENT DATE: 20180802
